FAERS Safety Report 10366194 (Version 2)
Quarter: 2014Q3

REPORT INFORMATION
  Report Type: Spontaneous
  Country: HU (occurrence: HU)
  Receive Date: 20140806
  Receipt Date: 20140918
  Transmission Date: 20150326
  Serious: Yes (Hospitalization, Other)
  Sender: FDA-Public Use
  Company Number: HU-BAYER-2014-117045

PATIENT
  Age: 53 Year
  Sex: Female

DRUGS (4)
  1. RIFAMPICIN [Suspect]
     Active Substance: RIFAMPIN
     Indication: ARTHRITIS BACTERIAL
     Dosage: 600 MG, QD
     Route: 042
  2. COLOMYCIN [COLISTIMETHATE SODIUM (A COMPONENT)] [Suspect]
     Active Substance: COLISTIN A SODIUM METHANESULFONATE
     Indication: ARTHRITIS BACTERIAL
     Dosage: UNK
  3. CIPROFLOXACIN. [Suspect]
     Active Substance: CIPROFLOXACIN
     Indication: ESCHERICHIA INFECTION
     Dosage: 400 MG, BID
  4. TEICOPLANIN [Suspect]
     Active Substance: TEICOPLANIN
     Indication: ARTHRITIS BACTERIAL
     Dosage: UNK

REACTIONS (17)
  - Proteus test positive [None]
  - Adrenocortical insufficiency acute [None]
  - Septic shock [None]
  - Metabolic acidosis [None]
  - Respiratory failure [None]
  - Clostridium difficile colitis [Recovered/Resolved]
  - Lower gastrointestinal haemorrhage [None]
  - Renal impairment [Recovered/Resolved]
  - Multi-organ failure [None]
  - Thrombocytopenia [None]
  - Acute hepatic failure [Recovered/Resolved]
  - Hypotension [None]
  - Immunosuppression [None]
  - Haemodialysis [None]
  - Urinary tract infection [None]
  - Haemodynamic instability [None]
  - Renal failure [None]
